FAERS Safety Report 4563956-2 (Version None)
Quarter: 2005Q1

REPORT INFORMATION
  Report Type: 
  Country: None (occurrence: None)
  Receive Date: 20050127
  Receipt Date: 20050119
  Transmission Date: 20050727
  Serious: Yes (Hospitalization)
  Sender: FDA-Public Use
  Company Number: K200500079

PATIENT
  Age: 60 Year
  Sex: Female

DRUGS (1)
  1. EPINEPHRINE [Suspect]
     Indication: ANGIONEUROTIC OEDEMA
     Dosage: 1/1000, 0.3 ML, INTRAVENOUS
     Route: 042

REACTIONS (5)
  - CHEST PAIN [None]
  - DIZZINESS [None]
  - MEDICATION ERROR [None]
  - TUNNEL VISION [None]
  - VENTRICULAR TACHYCARDIA [None]
